FAERS Safety Report 4407962-7 (Version None)
Quarter: 2004Q3

REPORT INFORMATION
  Report Type: 
  Country: None (occurrence: None)
  Receive Date: 20040716
  Receipt Date: 20040708
  Transmission Date: 20050211
  Serious: Yes (Other)
  Sender: FDA-Public Use
  Company Number: 2004222471JP

PATIENT
  Sex: Male

DRUGS (1)
  1. ALPRAZOLAM [Suspect]
     Dosage: 2.8 MG, ORAL
     Route: 048

REACTIONS (2)
  - OVERDOSE [None]
  - SUICIDE ATTEMPT [None]
